FAERS Safety Report 4336438-0 (Version None)
Quarter: 2004Q2

REPORT INFORMATION
  Report Type: 
  Country: None (occurrence: None)
  Receive Date: 20040407
  Receipt Date: 20040330
  Transmission Date: 20050107
  Serious: Yes (Other)
  Sender: FDA-Public Use
  Company Number: HQWYE796803FEB04

PATIENT
  Age: 59 Year
  Sex: Female
  Weight: 65.83 kg

DRUGS (5)
  1. RAPAMUNE [Suspect]
     Indication: LIVER TRANSPLANT
     Dosage: 1.5 MG 1X PER 1 DAY, ORAL
     Route: 048
     Dates: start: 20011001
  2. ZOLOFT [Concomitant]
  3. ZOCOR [Concomitant]
  4. PRANDIN [Concomitant]
  5. PROTONIX [Concomitant]

REACTIONS (4)
  - CARDIAC DISORDER [None]
  - CORONARY ARTERY SURGERY [None]
  - HAEMODIALYSIS [None]
  - RENAL FAILURE CHRONIC [None]
